FAERS Safety Report 7910681-3 (Version None)
Quarter: 2011Q4

REPORT INFORMATION
  Report Type: 
  Country: None (occurrence: None)
  Receive Date: 20111111
  Receipt Date: 20111107
  Transmission Date: 20120403
  Serious: Yes (Life-Threatening, Other)
  Sender: FDA-Public Use
  Company Number: CA-ASTRAZENECA-2011SE67184

PATIENT
  Age: 78 Year
  Sex: Female
  Weight: 52.2 kg

DRUGS (7)
  1. CRESTOR [Suspect]
     Route: 048
  2. LANOXIN [Concomitant]
     Route: 048
  3. FUROSEMIDE [Concomitant]
     Route: 048
  4. TEVA-WARFARIN [Concomitant]
     Route: 048
  5. APO-SOTALOL [Concomitant]
  6. ASPIRIN [Concomitant]
  7. TEVAMOXIN [Concomitant]

REACTIONS (2)
  - PULMONARY CONGESTION [None]
  - COUGH [None]
